FAERS Safety Report 5609161-X (Version None)
Quarter: 2008Q1

REPORT INFORMATION
  Report Type: 
  Country: None (occurrence: None)
  Receive Date: 20080131
  Receipt Date: 20080129
  Transmission Date: 20080703
  Serious: Yes (Other)
  Sender: FDA-Public Use
  Company Number: BR-TEVA-162306USA

PATIENT
  Sex: Female
  Weight: 74 kg

DRUGS (3)
  1. PIMOZIDE TABLETS [Suspect]
     Indication: DEPRESSION
     Route: 048
     Dates: start: 19980101
  2. PROMETHAZINE [Concomitant]
     Indication: DEPRESSION
     Dates: start: 19980320
  3. PROMETHAZINE [Concomitant]
     Indication: PSYCHOTIC DISORDER

REACTIONS (1)
  - TYPE 2 DIABETES MELLITUS [None]
